FAERS Safety Report 7472601-8 (Version None)
Quarter: 2011Q2

REPORT INFORMATION
  Report Type: 
  Country: None (occurrence: None)
  Receive Date: 20110511
  Receipt Date: 20110505
  Transmission Date: 20111010
  Serious: Yes (Hospitalization, Other)
  Sender: FDA-Public Use
  Company Number: US-BRISTOL-MYERS SQUIBB COMPANY-14387468

PATIENT
  Age: 70 Year
  Sex: Female
  Weight: 57 kg

DRUGS (18)
  1. VICODIN [Concomitant]
     Indication: PAIN
  2. CALCIUM + VITAMIN D [Concomitant]
  3. HYDROCODONE BITARTRATE [Concomitant]
  4. K-DUR [Concomitant]
  5. LASIX [Concomitant]
     Route: 048
  6. XANAX [Concomitant]
     Indication: ANXIETY
  7. NYSTATIN [Concomitant]
  8. LOMOTIL [Concomitant]
  9. SPRYCEL [Suspect]
     Indication: NON-HODGKIN'S LYMPHOMA
     Dosage: INTRRUPTED ON 23JAN09,05FEB08 200MG DAILY,14OCT08-14APR09 150MG,14AP09-PRESENT 100MG
     Route: 048
     Dates: start: 20080205
  10. MULTI-VITAMINS [Concomitant]
  11. ALDACTONE [Concomitant]
     Route: 048
  12. EFFEXOR [Concomitant]
  13. ATROPINE [Concomitant]
     Route: 048
  14. VOLTAREN [Concomitant]
     Route: 048
  15. POTASSIUM [Concomitant]
     Route: 048
  16. OS-CAL [Concomitant]
     Route: 048
  17. LOPID [Concomitant]
  18. VITAMIN C [Concomitant]
     Route: 048

REACTIONS (3)
  - SKIN ULCER [None]
  - OSTEONECROSIS [None]
  - SKIN GRAFT FAILURE [None]
